FAERS Safety Report 16308885 (Version 4)
Quarter: 2020Q2

REPORT INFORMATION
  Report Type: Report from Study
  Country: DE (occurrence: DE)
  Receive Date: 20190514
  Receipt Date: 20200511
  Transmission Date: 20200713
  Serious: Yes (Death, Life-Threatening, Hospitalization, Other)
  Sender: FDA-Public Use
  Company Number: DE-AUROBINDO-AUR-APL-2019-026352

PATIENT
  Age: 75 Year
  Sex: Male

DRUGS (7)
  1. ESOMEPRAZOLE. [Suspect]
     Active Substance: ESOMEPRAZOLE MAGNESIUM
     Indication: GASTROOESOPHAGEAL REFLUX DISEASE
     Dosage: 40 MILLIGRAM, ONCE A DAY
     Route: 065
  2. PIRFENIDONE. [Interacting]
     Active Substance: PIRFENIDONE
     Dosage: 1602 MILLIGRAM, ONCE A DAY (WEEK 2)
     Route: 065
  3. PIRFENIDONE. [Interacting]
     Active Substance: PIRFENIDONE
     Dosage: 534 MILLIGRAM, 3 TIMES A DAY (WEEK 2)
  4. PIRFENIDONE. [Interacting]
     Active Substance: PIRFENIDONE
     Dosage: 2403 MILLIGRAM, ONCE A DAY, WEEK 3
     Route: 065
  5. PIRFENIDONE. [Interacting]
     Active Substance: PIRFENIDONE
     Dosage: 801 MILLIGRAM, ONCE A DAY, WEEK 1
     Route: 065
  6. PIRFENIDONE. [Interacting]
     Active Substance: PIRFENIDONE
     Dosage: 801 MILLIGRAM, 3 TIMES A DAY (WEEK 3 AND ONWARDS)
     Route: 065
  7. PIRFENIDONE. [Interacting]
     Active Substance: PIRFENIDONE
     Indication: IDIOPATHIC PULMONARY FIBROSIS
     Dosage: 267 MILLIGRAM, 3 TIMES A DAY (WEEK 1)
     Route: 065

REACTIONS (20)
  - Gamma-glutamyltransferase increased [Unknown]
  - Blood bilirubin increased [Unknown]
  - Acute hepatic failure [Fatal]
  - Pruritus [Unknown]
  - Autoimmune hepatitis [Unknown]
  - Sepsis [Fatal]
  - Drug interaction [Fatal]
  - Drug-induced liver injury [Unknown]
  - Aspartate aminotransferase increased [Unknown]
  - Condition aggravated [Unknown]
  - Escherichia infection [Fatal]
  - Multiple organ dysfunction syndrome [Fatal]
  - Escherichia sepsis [Fatal]
  - Photophobia [Unknown]
  - Lactic acidosis [Fatal]
  - Liver injury [Unknown]
  - Alanine aminotransferase increased [Unknown]
  - Jaundice [Unknown]
  - Nausea [Unknown]
  - Fatigue [Unknown]
